FAERS Safety Report 6496350-8 (Version None)
Quarter: 2009Q4

REPORT INFORMATION
  Report Type: 
  Country: None (occurrence: None)
  Receive Date: 20091214
  Receipt Date: 20090918
  Transmission Date: 20100525
  Serious: No
  Sender: FDA-Public Use
  Company Number: US-ABBOTT-09P-163-0598522-00

PATIENT
  Sex: Male
  Weight: 77.18 kg

DRUGS (12)
  1. VICODIN ES [Suspect]
     Indication: PAIN IN EXTREMITY
     Dosage: TAKING 6 PILLS A DAY ON OWN
     Dates: start: 20090501
  2. VICODIN ES [Suspect]
  3. WELLBUTRIN [Concomitant]
     Indication: DEPRESSION
  4. LEXAPRO [Concomitant]
     Indication: DEPRESSION
  5. XANAX [Concomitant]
     Indication: ANXIETY DISORDER
  6. ARTHROTEC [Concomitant]
     Indication: ANTIINFLAMMATORY THERAPY
  7. NEXIUM [Concomitant]
     Indication: GASTROOESOPHAGEAL REFLUX DISEASE
  8. ZOCOR [Concomitant]
     Indication: BLOOD CHOLESTEROL INCREASED
  9. ADVAIR DISKUS 100/50 [Concomitant]
     Indication: HYPERSENSITIVITY
  10. ALBUTEROL [Concomitant]
     Indication: HYPERSENSITIVITY
  11. PRO-AIR [Concomitant]
     Indication: DRUG USE FOR UNKNOWN INDICATION
  12. SEROQUEL [Concomitant]
     Indication: INSOMNIA

REACTIONS (8)
  - ACTIVITIES OF DAILY LIVING IMPAIRED [None]
  - HYPERHIDROSIS [None]
  - INTERVERTEBRAL DISC DISORDER [None]
  - MALAISE [None]
  - MOBILITY DECREASED [None]
  - OVERDOSE [None]
  - TREMOR [None]
  - WITHDRAWAL SYNDROME [None]
